FAERS Safety Report 10279817 (Version 1)
Quarter: 2014Q3

REPORT INFORMATION
  Report Type: Spontaneous
  Country: DK (occurrence: DK)
  Receive Date: 20140707
  Receipt Date: 20140707
  Transmission Date: 20150326
  Serious: Yes (Death, Hospitalization)
  Sender: FDA-Public Use
  Company Number: DK-TEVA-492152ISR

PATIENT
  Age: 19 Year
  Sex: Male

DRUGS (4)
  1. PEGFILGRASTIM [Suspect]
     Active Substance: PEGFILGRASTIM
     Indication: FEBRILE NEUTROPENIA
     Route: 065
  2. BLEOMYCIN [Suspect]
     Active Substance: BLEOMYCIN SULFATE
     Indication: RETROPERITONEAL CANCER
     Dosage: 30.000IU ON DAY 2, 9, 16; THREE SERIES
     Route: 065
  3. ETOPOSIDE. [Concomitant]
     Active Substance: ETOPOSIDE
     Indication: RETROPERITONEAL CANCER
     Dosage: DAYS 1-5
     Route: 065
  4. CISPLATIN. [Concomitant]
     Active Substance: CISPLATIN
     Indication: RETROPERITONEAL CANCER
     Dosage: DAYS 1-5
     Route: 065

REACTIONS (2)
  - Pneumonitis [Fatal]
  - Febrile neutropenia [Not Recovered/Not Resolved]
